FAERS Safety Report 13713883 (Version 2)
Quarter: 2017Q4

REPORT INFORMATION
  Report Type: Report from Study
  Country: None (occurrence: US)
  Receive Date: 20170704
  Receipt Date: 20171127
  Transmission Date: 20180320
  Serious: Yes (Other)
  Sender: FDA-Public Use
  Company Number: US-ABBVIE-17K-163-2026860-00

PATIENT
  Sex: Male

DRUGS (1)
  1. HUMIRA [Suspect]
     Active Substance: ADALIMUMAB
     Indication: ANKYLOSING SPONDYLITIS
     Dosage: 2 TO 4 WEEKS
     Route: 058
     Dates: start: 2012

REACTIONS (4)
  - Intentional product misuse [Not Recovered/Not Resolved]
  - Spinal fusion acquired [Not Recovered/Not Resolved]
  - Iritis [Not Recovered/Not Resolved]
  - Mobility decreased [Not Recovered/Not Resolved]
